FAERS Safety Report 11857442 (Version 4)
Quarter: 2016Q1

REPORT INFORMATION
  Report Type: Spontaneous
  Country: JP (occurrence: JP)
  Receive Date: 20151221
  Receipt Date: 20160115
  Transmission Date: 20160526
  Serious: Yes (Other)
  Sender: FDA-Public Use
  Company Number: JP-PFIZER INC-2015456191

PATIENT
  Age: 55 Year
  Sex: Female

DRUGS (8)
  1. SAIREITO [Suspect]
     Active Substance: HERBALS
     Indication: OEDEMA
     Dosage: 2.7 G, 3X/DAY
     Route: 048
     Dates: start: 20151106
  2. CERCINE [Suspect]
     Active Substance: DIAZEPAM
     Indication: ANXIETY DISORDER
     Dosage: 5 MG, 4X/DAY
     Route: 048
     Dates: start: 20131212
  3. NEXIUM [Suspect]
     Active Substance: ESOMEPRAZOLE MAGNESIUM
     Indication: GASTROOESOPHAGEAL REFLUX DISEASE
     Dosage: 20 MG, 1X/DAY
     Route: 048
     Dates: start: 20140801
  4. CELESTAMINE [Suspect]
     Active Substance: BETAMETHASONE\DEXCHLORPHENIRAMINE MALEATE
     Indication: DERMATITIS CONTACT
     Dosage: 1 DF, 1X/DAY
     Route: 048
     Dates: start: 20150519
  5. JZOLOFT [Suspect]
     Active Substance: SERTRALINE HYDROCHLORIDE
     Indication: DEPRESSION
     Dosage: 25 MG, 1X/DAY
     Route: 048
     Dates: start: 20131206, end: 20151216
  6. SOLANAX [Suspect]
     Active Substance: ALPRAZOLAM
     Indication: ANXIETY DISORDER
     Dosage: 0.4 MG, 4X/DAY
     Route: 048
     Dates: start: 20131212
  7. CALONAL [Suspect]
     Active Substance: ACETAMINOPHEN
     Indication: PYREXIA
     Dosage: 200 MG, 2X/DAY
     Route: 048
     Dates: start: 20140701
  8. ALINAMIN F [Suspect]
     Active Substance: FURSULTIAMINE HYDROCHLORIDE
     Indication: NEUROPATHY PERIPHERAL
     Dosage: 25 MG, 2X/DAY
     Route: 048
     Dates: start: 20150902

REACTIONS (4)
  - Oral herpes [Recovered/Resolved]
  - Dermatitis contact [Recovered/Resolved]
  - Anxiety [Unknown]
  - Oedema peripheral [Unknown]

NARRATIVE: CASE EVENT DATE: 20151106
